FAERS Safety Report 20546648 (Version 1)
Quarter: 2022Q1

REPORT INFORMATION
  Report Type: Spontaneous
  Country: NO (occurrence: NO)
  Receive Date: 20220303
  Receipt Date: 20220303
  Transmission Date: 20220423
  Serious: Yes (Hospitalization, Other)
  Sender: FDA-Public Use
  Company Number: None

PATIENT
  Age: 47 Year
  Sex: Male

DRUGS (4)
  1. LYRICA [Suspect]
     Active Substance: PREGABALIN
     Dosage: 600 MG, DAILY
     Route: 048
     Dates: start: 2003
  2. OXAZEPAM [Suspect]
     Active Substance: OXAZEPAM
     Indication: Fatigue
     Dosage: 600 MG
     Dates: start: 2003
  3. OXAZEPAM [Suspect]
     Active Substance: OXAZEPAM
     Indication: Coordination abnormal
  4. OXAZEPAM [Suspect]
     Active Substance: OXAZEPAM
     Indication: Metamorphopsia

REACTIONS (6)
  - Cognitive disorder [Not Recovered/Not Resolved]
  - Memory impairment [Not Recovered/Not Resolved]
  - Dizziness [Not Recovered/Not Resolved]
  - Drug dependence [Unknown]
  - Overdose [Unknown]
  - Off label use [Unknown]
